FAERS Safety Report 20280598 (Version 1)
Quarter: 2022Q1

REPORT INFORMATION
  Report Type: Spontaneous
  Country: US (occurrence: None)
  Receive Date: 20220101
  Receipt Date: 20220101
  Transmission Date: 20220423
  Serious: Yes (Hospitalization, Disabling)
  Sender: FDA-Public Use
  Company Number: None

PATIENT
  Age: 56 Year
  Sex: Female
  Weight: 97.5 kg

DRUGS (4)
  1. LEVOFLOXACIN [Suspect]
     Active Substance: LEVOFLOXACIN
     Indication: Pneumonia
     Dosage: OTHER FREQUENCY : ONCE;?
     Route: 040
     Dates: start: 20211112, end: 20211113
  2. PROGESTERONE [Suspect]
     Active Substance: PROGESTERONE
     Indication: Hormone replacement therapy
     Dosage: FREQUENCY : DAILY;?
     Route: 048
     Dates: start: 20190101
  3. METHYLPREDNISOLONE [Concomitant]
     Active Substance: METHYLPREDNISOLONE
     Dates: start: 20211112, end: 20211114
  4. PREDNISONE [Concomitant]
     Active Substance: PREDNISONE
     Dates: start: 20211115, end: 20211130

REACTIONS (3)
  - Dyspnoea [None]
  - Respiratory syncytial virus test positive [None]
  - Animal scratch [None]

NARRATIVE: CASE EVENT DATE: 20211231
